FAERS Safety Report 23980052 (Version 1)
Quarter: 2024Q2

REPORT INFORMATION
  Report Type: Spontaneous
  Country: CN (occurrence: CN)
  Receive Date: 20240617
  Receipt Date: 20240617
  Transmission Date: 20240716
  Serious: Yes (Hospitalization, Other)
  Sender: FDA-Public Use
  Company Number: None

PATIENT
  Age: 60 Year
  Sex: Male
  Weight: 60 kg

DRUGS (5)
  1. CYCLOPHOSPHAMIDE [Suspect]
     Active Substance: CYCLOPHOSPHAMIDE
     Indication: Lymphoma
     Dosage: 1 G, ONE TIME IN ONE DAY
     Route: 041
     Dates: start: 20240523, end: 20240523
  2. RITUXIMAB [Suspect]
     Active Substance: RITUXIMAB
     Indication: Lymphoma
     Dosage: 100 MG, ONE TIME IN ONE DAY
     Route: 041
     Dates: start: 20240523, end: 20240523
  3. VINCRISTINE SULFATE [Suspect]
     Active Substance: VINCRISTINE SULFATE
     Indication: Lymphoma
     Dosage: 1 MG, ONE TIME IN ONE DAY
     Route: 041
     Dates: start: 20240523, end: 20240523
  4. DOXORUBICIN HYDROCHLORIDE [Suspect]
     Active Substance: DOXORUBICIN HYDROCHLORIDE
     Indication: Lymphoma
     Dosage: 20 ML, ONE TIME IN ONE DAY
     Route: 041
     Dates: start: 20240523, end: 20240523
  5. PREDNISOLONE ACETATE [Suspect]
     Active Substance: PREDNISOLONE ACETATE
     Indication: Lymphoma
     Dosage: 20 MG, ONE TIME IN ONE DAY
     Route: 041
     Dates: start: 20240523, end: 20240523

REACTIONS (5)
  - Gastrooesophageal reflux disease [Unknown]
  - Myelosuppression [Recovering/Resolving]
  - Abdominal pain [Recovering/Resolving]
  - Abdominal pain lower [Recovering/Resolving]
  - Nausea [Unknown]

NARRATIVE: CASE EVENT DATE: 20240524
